FAERS Safety Report 18415392 (Version 3)
Quarter: 2020Q4

REPORT INFORMATION
  Report Type: Spontaneous
  Country: JP (occurrence: JP)
  Receive Date: 20201022
  Receipt Date: 20201229
  Transmission Date: 20210114
  Serious: Yes (Hospitalization)
  Sender: FDA-Public Use
  Company Number: JP-ASTRAZENECA-2020SF34254

PATIENT
  Age: 65 Year
  Sex: Male

DRUGS (9)
  1. MAGMITT [Suspect]
     Active Substance: MAGNESIUM OXIDE
     Indication: CONSTIPATION
     Dosage: 1500 MG, DAILY, SEVERAL TIMES
     Route: 048
  2. THEO-DUR [Concomitant]
     Active Substance: THEOPHYLLINE ANHYDROUS
  3. LOKELMA [Suspect]
     Active Substance: SODIUM ZIRCONIUM CYCLOSILICATE
     Dosage: 5 G, EVERY DAY, NON-DIALYSIS DAY
     Route: 048
     Dates: start: 20201008, end: 20201012
  4. AZOSEMIDE [Concomitant]
     Active Substance: AZOSEMIDE
  5. TSUMURA DAIOKANZOTO [Concomitant]
  6. AMLODIPINE [Concomitant]
     Active Substance: AMLODIPINE BESYLATE
  7. PROPRANOLOL HYDROCHLORIDE. [Concomitant]
     Active Substance: PROPRANOLOL HYDROCHLORIDE
  8. REBAMIPIDE [Concomitant]
     Active Substance: REBAMIPIDE
  9. TOCILIZUMAB. [Suspect]
     Active Substance: TOCILIZUMAB

REACTIONS (1)
  - Intestinal perforation [Unknown]

NARRATIVE: CASE EVENT DATE: 20201012
